FAERS Safety Report 5852716-8 (Version None)
Quarter: 2008Q3

REPORT INFORMATION
  Report Type: 
  Country: None (occurrence: None)
  Receive Date: 20080821
  Receipt Date: 20080818
  Transmission Date: 20090109
  Serious: Yes (Hospitalization)
  Sender: FDA-Public Use
  Company Number: DE-WYE-G02013708

PATIENT
  Age: 61 Year
  Sex: Male
  Weight: 70 kg

DRUGS (4)
  1. RAPAMUNE [Suspect]
     Indication: PROPHYLAXIS AGAINST TRANSPLANT REJECTION
     Dosage: 3 MG PER DAY
     Route: 048
     Dates: start: 20070319, end: 20070520
  2. RAPAMUNE [Suspect]
     Dosage: 1 MG PER DAY
     Route: 048
     Dates: start: 20070521
  3. CELLCEPT [Concomitant]
     Indication: PROPHYLAXIS AGAINST TRANSPLANT REJECTION
     Dosage: 1500 MG PER DAY
     Route: 048
     Dates: start: 20070201
  4. CYCLOSPORINE [Concomitant]
     Indication: PROPHYLAXIS AGAINST TRANSPLANT REJECTION
     Dosage: 130 MG PER DAY
     Route: 048

REACTIONS (3)
  - CANDIDIASIS [None]
  - NECROSIS [None]
  - WOUND INFECTION [None]
